FAERS Safety Report 7461394-6 (Version None)
Quarter: 2011Q2

REPORT INFORMATION
  Report Type: 
  Country: None (occurrence: None)
  Receive Date: 20110506
  Receipt Date: 20110426
  Transmission Date: 20111010
  Serious: Yes (Life-Threatening, Hospitalization)
  Sender: FDA-Public Use
  Company Number: FR-CELGENEUS-056-C5013-11032040

PATIENT
  Sex: Male
  Weight: 76.5 kg

DRUGS (17)
  1. CC-5013\PLACEBO [Suspect]
     Indication: PROSTATE CANCER
     Dosage: 25 MILLIGRAM
     Route: 048
     Dates: start: 20110216
  2. INNOHEP [Concomitant]
     Indication: THROMBOSIS
     Dosage: .7 MILLILITER
     Route: 058
     Dates: start: 20110126, end: 20110314
  3. ATENOLOL [Concomitant]
     Indication: ARRHYTHMIA
     Dosage: 50 MILLIGRAM
     Route: 048
     Dates: start: 20050101, end: 20110315
  4. FUROSEMIDE [Concomitant]
     Indication: HYPERTENSION
     Dosage: 40 MILLIGRAM
     Route: 048
     Dates: start: 20050101, end: 20110315
  5. ZOLADEX [Concomitant]
     Indication: PROSTATE CANCER
     Dosage: .12 MILLIGRAM
     Route: 058
     Dates: start: 20110126
  6. TAHOR [Concomitant]
     Indication: DIABETES MELLITUS
     Dosage: 40 MILLIGRAM
     Route: 048
     Dates: start: 20070101, end: 20110307
  7. FOZITEC [Concomitant]
     Indication: HYPERTENSION
     Dosage: 10 MILLIGRAM
     Route: 048
     Dates: start: 20070101, end: 20110307
  8. TAHOR [Concomitant]
     Dosage: 40 MILLIGRAM
     Route: 048
     Dates: start: 20110315
  9. AMLODIPINE [Concomitant]
     Indication: HYPERTENSION
     Dosage: 5 MILLIGRAM
     Route: 048
     Dates: start: 20100101, end: 20110307
  10. ALLOPURINOL [Concomitant]
     Indication: GOUT
     Dosage: 100 MILLIGRAM
     Route: 048
     Dates: start: 20100101
  11. DOCETAXEL [Suspect]
     Indication: PROSTATE CANCER
     Dosage: 140 MILLIGRAM
     Route: 065
     Dates: start: 20110216
  12. PREDNISONE [Suspect]
     Indication: PROSTATE CANCER
     Dosage: 10 MILLIGRAM
     Route: 065
     Dates: start: 20110216
  13. ZOMETA [Suspect]
     Dosage: .11 MILLIGRAM
     Route: 058
     Dates: start: 20101101
  14. LANTUS [Concomitant]
     Dosage: 18 IU (INTERNATIONAL UNIT)
     Route: 058
     Dates: start: 20060101
  15. UN ALFA [Concomitant]
     Indication: RENAL OSTEODYSTROPHY
     Dosage: .1071 MICROGRAM
     Route: 048
     Dates: start: 20060131, end: 20110307
  16. NEXIUM [Concomitant]
     Dosage: 40 MILLIGRAM
     Route: 048
     Dates: start: 20110307, end: 20110312
  17. COLCHIMAX [Concomitant]
     Indication: GOUT
     Dosage: 1 MILLIGRAM
     Route: 048
     Dates: start: 20110307, end: 20110313

REACTIONS (3)
  - URINARY TRACT INFECTION [None]
  - METABOLIC ACIDOSIS [None]
  - HYPOCALCAEMIA [None]
